FAERS Safety Report 9484036 (Version 2)
Quarter: 2013Q3

REPORT INFORMATION
  Report Type: Spontaneous
  Country: CA (occurrence: CA)
  Receive Date: 20130828
  Receipt Date: 20130828
  Transmission Date: 20140515
  Serious: Yes (Other)
  Sender: FDA-Public Use
  Company Number: CA-AMGEN-KDL364606

PATIENT
  Age: 56 Year
  Sex: Male
  Weight: 70.4 kg

DRUGS (9)
  1. ENBREL [Suspect]
     Indication: ANKYLOSING SPONDYLITIS
     Dosage: UNK UNK, QWK
     Route: 065
     Dates: start: 20090825
  2. CELECOXIB [Concomitant]
     Dosage: UNK UNK, UNK
  3. SULFASALAZINE [Concomitant]
     Dosage: UNK UNK, UNK
  4. RAMIPRIL [Concomitant]
     Dosage: UNK UNK, UNK
  5. METOPROLOL [Concomitant]
     Dosage: UNK UNK, UNK
  6. FOLIC ACID [Concomitant]
     Dosage: UNK UNK, UNK
  7. PANADEINE CO [Concomitant]
     Dosage: UNK UNK, UNK
  8. SIMVASTATIN [Concomitant]
     Dosage: UNK UNK, UNK
  9. METHOTREXATE [Concomitant]

REACTIONS (2)
  - Therapeutic response decreased [Unknown]
  - Ankylosing spondylitis [Unknown]
